FAERS Safety Report 5555159-X (Version None)
Quarter: 2007Q4

REPORT INFORMATION
  Report Type: 
  Country: None (occurrence: None)
  Receive Date: 20071213
  Receipt Date: 20071205
  Transmission Date: 20080405
  Serious: Yes (Hospitalization)
  Sender: FDA-Public Use
  Company Number: KE-GILEAD-2007-0014530

PATIENT
  Age: 22 Year
  Sex: Female
  Weight: 47.3 kg

DRUGS (11)
  1. TRUVADA [Suspect]
     Indication: HIV INFECTION
     Dosage: 300/200 MG
     Route: 048
     Dates: start: 20060622
  2. ALUVIA [Suspect]
     Indication: HIV INFECTION
     Dosage: 400/100 MG
     Route: 048
     Dates: start: 20060622
  3. ALUVIA [Suspect]
  4. SEPTRIN DS [Concomitant]
     Dosage: 1 TAB
     Route: 048
  5. VITACAP [Concomitant]
     Dosage: 1 TAB
  6. DEPO-PROVERA [Concomitant]
     Route: 030
  7. LAMOTRIGINE [Concomitant]
     Route: 048
  8. LAMOTRIGINE [Concomitant]
     Route: 048
  9. ACYCLOVIR [Concomitant]
     Dosage: TOPICAL APPLICATION
     Route: 061
  10. ACECLOFENAC [Concomitant]
     Route: 048
  11. FOLIC ACID [Concomitant]
     Route: 048

REACTIONS (1)
  - GASTRITIS [None]
